FAERS Safety Report 5286933-5 (Version None)
Quarter: 2007Q2

REPORT INFORMATION
  Report Type: 
  Country: None (occurrence: None)
  Receive Date: 20070404
  Receipt Date: 20070329
  Transmission Date: 20071010
  Serious: Yes (Other)
  Sender: FDA-Public Use
  Company Number: ES-MERCK-0703ESP00051

PATIENT
  Sex: Female

DRUGS (2)
  1. COSOPT [Suspect]
     Route: 047
     Dates: start: 20060411, end: 20061201
  2. COSOPT [Suspect]
     Route: 047
     Dates: start: 20070101, end: 20070101

REACTIONS (5)
  - ADVERSE EVENT [None]
  - EYE IRRITATION [None]
  - EYE PRURITUS [None]
  - EYE SWELLING [None]
  - GLAUCOMA [None]
